FAERS Safety Report 5422596-3 (Version None)
Quarter: 2007Q3

REPORT INFORMATION
  Report Type: 
  Country: None (occurrence: None)
  Receive Date: 20070822
  Receipt Date: 20070809
  Transmission Date: 20080115
  Serious: Yes (Hospitalization, Disabling, Other)
  Sender: FDA-Public Use
  Company Number: US-ELI_LILLY_AND_COMPANY-US200601003194

PATIENT
  Age: 70 Year
  Sex: Female
  Weight: 58.503 kg

DRUGS (6)
  1. FORTEO [Suspect]
     Indication: OSTEOPENIA
     Dosage: 20 UG, DAILY (1/D)
     Dates: start: 20050624, end: 20051101
  2. PACERONE [Concomitant]
     Dosage: 200 MG, DAILY (1/D)
  3. AMBIEN [Concomitant]
     Dosage: 5 MG, EACH EVENING
  4. WELLBUTRIN [Concomitant]
     Dosage: 50 MG, EACH MORNING
  5. DARVOCET [Concomitant]
     Dosage: 100 MG, AS NEEDED
  6. CALCIUM WITH VITAMIN D [Concomitant]
     Dosage: 600 MG, DAILY (1/D)

REACTIONS (12)
  - ABASIA [None]
  - BLOOD PRESSURE DECREASED [None]
  - BONE DENSITY DECREASED [None]
  - CHRONIC OBSTRUCTIVE PULMONARY DISEASE [None]
  - CRYING [None]
  - FEELING ABNORMAL [None]
  - HYPERTENSION [None]
  - MUSCULAR WEAKNESS [None]
  - PLEURAL EFFUSION [None]
  - PNEUMONIA [None]
  - TACHYCARDIA [None]
  - UPPER RESPIRATORY TRACT INFECTION [None]
